FAERS Safety Report 6791155-2 (Version None)
Quarter: 2010Q2

REPORT INFORMATION
  Report Type: 
  Country: None (occurrence: None)
  Receive Date: 20100624
  Receipt Date: 20100616
  Transmission Date: 20101027
  Serious: Yes (Hospitalization, Other)
  Sender: FDA-Public Use
  Company Number: JP-PFIZER INC-2010073852

PATIENT
  Age: 32 Year
  Sex: Female

DRUGS (3)
  1. HALCION [Suspect]
     Dosage: 2.5 MG DAILY
     Route: 048
     Dates: start: 20100614, end: 20100614
  2. DEPAS [Suspect]
     Dosage: 10 MG DAILY
     Route: 048
     Dates: start: 20100614, end: 20100614
  3. SEROQUEL [Suspect]
     Dosage: 1000 MG DAILY
     Route: 048
     Dates: start: 20100614, end: 20100614

REACTIONS (2)
  - OVERDOSE [None]
  - SUICIDE ATTEMPT [None]
